FAERS Safety Report 7938822 (Version 2)
Quarter: 2013Q2

REPORT INFORMATION
  Report Type: Spontaneous
  Country: US (occurrence: US)
  Receive Date: 20110510
  Receipt Date: 20130423
  Transmission Date: 20140414
  Serious: Yes (Life-Threatening, Other)
  Sender: FDA-Public Use
  Company Number: US-ALEXION-A201001400

PATIENT
  Age: 17 Year
  Sex: Male

DRUGS (2)
  1. SOLIRIS 300MG [Suspect]
     Indication: MALIGNANT ATROPHIC PAPULOSIS
     Dosage: UNK
     Route: 042
     Dates: start: 200912
  2. SOLIRIS 300MG [Suspect]
     Indication: OFF LABEL USE

REACTIONS (6)
  - Malignant atrophic papulosis [Not Recovered/Not Resolved]
  - Condition aggravated [Not Recovered/Not Resolved]
  - Abdominal pain [Recovered/Resolved]
  - Cystitis haemorrhagic [Recovered/Resolved]
  - Aphasia [Recovered/Resolved]
  - Hypoaesthesia [Recovered/Resolved]
